FAERS Safety Report 11031177 (Version 1)
Quarter: 2015Q2

REPORT INFORMATION
  Report Type: Spontaneous
  Country: US (occurrence: US)
  Receive Date: 20150415
  Receipt Date: 20150415
  Transmission Date: 20150821
  Serious: No
  Sender: FDA-Public Use
  Company Number: US-ASTRAZENECA-2014SE32624

PATIENT
  Sex: Male

DRUGS (3)
  1. PRILOSEC OTC [Suspect]
     Active Substance: OMEPRAZOLE MAGNESIUM
     Indication: ABDOMINAL DISTENSION
     Route: 048
     Dates: start: 20140504, end: 20140507
  2. PRILOSEC OTC [Interacting]
     Active Substance: OMEPRAZOLE MAGNESIUM
     Indication: ABDOMINAL PAIN UPPER
     Route: 048
     Dates: start: 20140504, end: 20140507
  3. COUMADIN [Interacting]
     Active Substance: WARFARIN SODIUM
     Dosage: UNKNOWN
     Route: 065

REACTIONS (4)
  - Eye haemorrhage [Unknown]
  - Product use issue [Unknown]
  - Labelled drug-drug interaction medication error [Unknown]
  - Ocular hyperaemia [Unknown]
